FAERS Safety Report 13373064 (Version 1)
Quarter: 2017Q1

REPORT INFORMATION
  Report Type: Spontaneous
  Country: US (occurrence: US)
  Receive Date: 20170326
  Receipt Date: 20170326
  Transmission Date: 20170429
  Serious: Yes (Life-Threatening, Hospitalization)
  Sender: FDA-Public Use
  Company Number: None

PATIENT
  Age: 31 Year
  Sex: Female
  Weight: 110.2 kg

DRUGS (9)
  1. GLUCOSAMINE [Concomitant]
     Active Substance: GLUCOSAMINE
  2. ZYRTEC [Concomitant]
     Active Substance: CETIRIZINE HYDROCHLORIDE
  3. BENADRYL [Concomitant]
     Active Substance: DIPHENHYDRAMINE HYDROCHLORIDE
  4. IMURAN [Concomitant]
     Active Substance: AZATHIOPRINE
  5. EPINEPHRINE INJECTOR [Suspect]
     Active Substance: EPINEPHRINE
     Indication: HYPERSENSITIVITY
     Dosage: QUANTITY:2 INJECTION(S);?
     Route: 030
     Dates: start: 20170318, end: 20170318
  6. PREDNISONE. [Concomitant]
     Active Substance: PREDNISONE
  7. DAPSONE. [Concomitant]
     Active Substance: DAPSONE
  8. EPIPEN [Concomitant]
     Active Substance: EPINEPHRINE
  9. SOLU-MEDROL [Concomitant]
     Active Substance: METHYLPREDNISOLONE SODIUM SUCCINATE

REACTIONS (3)
  - Hypersensitivity [None]
  - Incorrect route of drug administration [None]
  - Drug ineffective [None]

NARRATIVE: CASE EVENT DATE: 20170318
